FAERS Safety Report 26079964 (Version 2)
Quarter: 2025Q4

REPORT INFORMATION
  Report Type: Report from Study
  Country: CO (occurrence: CO)
  Receive Date: 20251123
  Receipt Date: 20251203
  Transmission Date: 20260118
  Serious: Yes (Hospitalization)
  Sender: ABBVIE
  Company Number: CO-ABBVIE-6553302

PATIENT
  Age: 56 Year
  Sex: Female
  Weight: 60 kg

DRUGS (1)
  1. RINVOQ [Suspect]
     Active Substance: UPADACITINIB
     Indication: Rheumatoid arthritis
     Dosage: FORM STRENGTH 15 MG
     Route: 048
     Dates: start: 20220601

REACTIONS (4)
  - Osteoarthritis [Recovered/Resolved]
  - Movement disorder [Recovered/Resolved]
  - Rheumatoid arthritis [Recovering/Resolving]
  - Body height decreased [Unknown]

NARRATIVE: CASE EVENT DATE: 20230101
